FAERS Safety Report 6612259-0 (Version None)
Quarter: 2010Q1

REPORT INFORMATION
  Report Type: 
  Country: None (occurrence: None)
  Receive Date: 20100223
  Receipt Date: 20100130
  Transmission Date: 20100710
  Serious: No
  Sender: FDA-Public Use
  Company Number: 2010-00213

PATIENT
  Age: 47 Year
  Sex: Female
  Weight: 56.6996 kg

DRUGS (8)
  1. ZICAM COLD REMEDY PLUS LIQUI-LOZ [Suspect]
     Indication: NASOPHARYNGITIS
     Dosage: EVERY 3 HOURS, 2 DAYS
     Dates: start: 20091221, end: 20091223
  2. TAPAZOLE [Concomitant]
  3. ZYRTEC [Concomitant]
  4. SINGULAIR [Concomitant]
  5. ALLERGY SHOTS [Concomitant]
  6. BERKLEY AND JENSEN MULTIVITAMIN [Concomitant]
  7. VITAMINS C + D [Concomitant]
  8. CALCIUM + MAGNESIUM [Concomitant]

REACTIONS (2)
  - AGEUSIA [None]
  - ANOSMIA [None]
